FAERS Safety Report 7919043-6 (Version None)
Quarter: 2011Q4

REPORT INFORMATION
  Report Type: 
  Country: None (occurrence: None)
  Receive Date: 20111116
  Receipt Date: 20111107
  Transmission Date: 20120403
  Serious: Yes (Hospitalization, Other)
  Sender: FDA-Public Use
  Company Number: CA-ASTRAZENECA-2011SE67237

PATIENT
  Age: 81 Year
  Sex: Female

DRUGS (18)
  1. PREDNISONE TAB [Concomitant]
  2. AIROMIR [Concomitant]
  3. APRESOLINE [Concomitant]
     Dosage: 200 MG/ AMPOULE
     Route: 042
  4. FLOVENT [Concomitant]
  5. QVAR 40 [Concomitant]
  6. CRESTOR [Suspect]
     Route: 048
  7. PANTALOC [Concomitant]
  8. NITROGLYCERIN [Concomitant]
  9. ASPIRIN [Concomitant]
  10. ATIVAN [Concomitant]
  11. ISOPTIN SR [Concomitant]
  12. SYNTHROID [Concomitant]
  13. NITRO-DUR [Concomitant]
  14. NITROGLYCERIN [Concomitant]
     Route: 060
  15. PULMICORT [Concomitant]
  16. VENTOLIN [Concomitant]
  17. ATASOL WITH CODEINE-CAFFEINE [Concomitant]
  18. PLAVIX [Concomitant]

REACTIONS (10)
  - CHEST PAIN [None]
  - BACK PAIN [None]
  - INFREQUENT BOWEL MOVEMENTS [None]
  - NAUSEA [None]
  - VOMITING [None]
  - PAIN IN EXTREMITY [None]
  - ABDOMINAL PAIN [None]
  - DIARRHOEA [None]
  - WEIGHT DECREASED [None]
  - MYALGIA [None]
